FAERS Safety Report 6644071-0 (Version None)
Quarter: 2010Q1

REPORT INFORMATION
  Report Type: 
  Country: None (occurrence: None)
  Receive Date: 20100322
  Receipt Date: 20100308
  Transmission Date: 20100710
  Serious: Yes (Other)
  Sender: FDA-Public Use
  Company Number: PHHY2010US14354

PATIENT
  Sex: Female
  Weight: 55 kg

DRUGS (1)
  1. RECLAST [Suspect]
     Indication: OSTEOPOROSIS
     Dosage: UNK
     Route: 042
     Dates: start: 20100205, end: 20100305

REACTIONS (5)
  - DRY THROAT [None]
  - HEADACHE [None]
  - PALPITATIONS [None]
  - PHARYNGEAL OEDEMA [None]
  - THROAT TIGHTNESS [None]
